FAERS Safety Report 13485676 (Version 1)
Quarter: 2017Q2

REPORT INFORMATION
  Report Type: Spontaneous
  Country: US (occurrence: US)
  Receive Date: 20170425
  Receipt Date: 20170425
  Transmission Date: 20170830
  Serious: No
  Sender: FDA-Public Use
  Company Number: US-PFIZER INC-2017177522

PATIENT
  Age: 62 Year
  Sex: Female
  Weight: 107.5 kg

DRUGS (2)
  1. IBRANCE [Suspect]
     Active Substance: PALBOCICLIB
     Indication: BREAST CANCER METASTATIC
     Dosage: 125 MG, CYCLIC (D 1-21 Q 28 DAYS)
     Route: 048
     Dates: start: 2015
  2. LETROZOLE. [Suspect]
     Active Substance: LETROZOLE
     Dosage: UNK

REACTIONS (4)
  - Arthralgia [Unknown]
  - Muscular weakness [Unknown]
  - Weight decreased [Unknown]
  - Neoplasm progression [Unknown]
